FAERS Safety Report 6700340-7 (Version None)
Quarter: 2010Q2

REPORT INFORMATION
  Report Type: 
  Country: None (occurrence: None)
  Receive Date: 20100428
  Receipt Date: 20100409
  Transmission Date: 20101027
  Serious: No
  Sender: FDA-Public Use
  Company Number: US-B.I. PHARMACEUTICALS,INC./RIDGEFIELD-2010-BP-04104BP

PATIENT

DRUGS (2)
  1. VIRAMUNE [Suspect]
     Dates: start: 20050101
  2. TRUVADA [Concomitant]
     Dates: start: 20050101

REACTIONS (7)
  - BACK PAIN [None]
  - HEADACHE [None]
  - INSOMNIA [None]
  - MUSCLE SPASMS [None]
  - NEUROPATHY PERIPHERAL [None]
  - PAIN [None]
  - PAIN IN EXTREMITY [None]
